FAERS Safety Report 5613149-2 (Version None)
Quarter: 2008Q1

REPORT INFORMATION
  Report Type: 
  Country: None (occurrence: None)
  Receive Date: 20080129
  Receipt Date: 20080118
  Transmission Date: 20080703
  Serious: Yes (Death)
  Sender: FDA-Public Use
  Company Number: 230645J08USA

PATIENT
  Age: 43 Year
  Sex: Male

DRUGS (1)
  1. REBIF [Suspect]
     Indication: MULTIPLE SCLEROSIS

REACTIONS (3)
  - BLOOD DISORDER [None]
  - DISEASE COMPLICATION [None]
  - INFECTION [None]
